FAERS Safety Report 14975745 (Version 1)
Quarter: 2018Q2

REPORT INFORMATION
  Report Type: Spontaneous
  Country: US (occurrence: US)
  Receive Date: 20180605
  Receipt Date: 20180605
  Transmission Date: 20180711
  Serious: No
  Sender: FDA-Public Use
  Company Number: US-ROCHE-1990899

PATIENT
  Age: 37 Year
  Sex: Male

DRUGS (1)
  1. ACTEMRA [Suspect]
     Active Substance: TOCILIZUMAB
     Indication: MULTIPLE SCLEROSIS
     Route: 048
     Dates: start: 20170804

REACTIONS (5)
  - Musculoskeletal stiffness [Unknown]
  - Intentional product use issue [Unknown]
  - Asthenia [Unknown]
  - Off label use [Unknown]
  - Constipation [Unknown]

NARRATIVE: CASE EVENT DATE: 20170822
